FAERS Safety Report 21638744 (Version 2)
Quarter: 2023Q1

REPORT INFORMATION
  Report Type: Spontaneous
  Country: IN (occurrence: IN)
  Receive Date: 20221124
  Receipt Date: 20230103
  Transmission Date: 20230417
  Serious: Yes (Death)
  Sender: FDA-Public Use
  Company Number: IN-PFIZER INC-202200578105

PATIENT
  Age: 58 Year
  Sex: Female

DRUGS (1)
  1. PALBOCICLIB [Suspect]
     Active Substance: PALBOCICLIB
     Indication: Breast cancer
     Dosage: 125 MG, CYCLIC (FOR 21DAYS, 7 DAYS GAP)
     Route: 048
     Dates: start: 20220212

REACTIONS (4)
  - Death [Fatal]
  - Mouth ulceration [Unknown]
  - Off label use [Unknown]
  - Product use issue [Unknown]
